FAERS Safety Report 5703096-X (Version None)
Quarter: 2008Q2

REPORT INFORMATION
  Report Type: 
  Country: None (occurrence: None)
  Receive Date: 20080411
  Receipt Date: 20080331
  Transmission Date: 20081010
  Serious: Yes (Life-Threatening, Other)
  Sender: FDA-Public Use
  Company Number: JP-ROCHE-521247

PATIENT
  Sex: Female
  Weight: 55 kg

DRUGS (8)
  1. TAMIFLU [Suspect]
     Route: 048
     Dates: start: 20070909, end: 20070910
  2. SYMMETREL [Concomitant]
     Route: 048
     Dates: start: 20070910
  3. GLYCEOL [Concomitant]
     Dosage: ROUTE: INTRAVENOUS DRIP
     Route: 042
     Dates: start: 20070910
  4. GLYCEOL [Concomitant]
     Dosage: ROUTE: INTRAVENOUS DRIP
     Route: 042
     Dates: start: 20070910
  5. GLYCEOL [Concomitant]
     Dosage: ROUTE: INTRAVENOUS DRIP
     Route: 042
     Dates: start: 20070910
  6. PREDOPA [Concomitant]
     Dosage: DOSE FORM: INJECTION; ROUTE: INJECTABLE (NOT OTHRWISE SPECIFIED)
     Route: 050
     Dates: start: 20070910, end: 20070913
  7. 1 CONCOMITANT DRUG [Concomitant]
     Dosage: DRUG: HYPNOTICS AND SEDATIVES, ANTIANXIETICS
     Route: 065
     Dates: start: 20070910
  8. ACETAMINOPHEN [Concomitant]
     Route: 065

REACTIONS (2)
  - VENTRICULAR FIBRILLATION [None]
  - VIRAL MYOCARDITIS [None]
